FAERS Safety Report 9982095 (Version 2)
Quarter: 2014Q1

REPORT INFORMATION
  Report Type: Report from Study
  Country: US (occurrence: US)
  Receive Date: 20140307
  Receipt Date: 20140307
  Transmission Date: 20141002
  Serious: No
  Sender: FDA-Public Use
  Company Number: US-ABBVIE-13P-163-1158597-00

PATIENT
  Age: 24 Year
  Sex: Female

DRUGS (8)
  1. HUMIRA [Suspect]
     Indication: COLITIS ULCERATIVE
     Dosage: LOADING DOSE
     Route: 058
     Dates: start: 20131014, end: 20131014
  2. HUMIRA [Suspect]
  3. SPRINTEC [Concomitant]
     Indication: PRODUCT USED FOR UNKNOWN INDICATION
     Dosage: 0.250/0.35
     Route: 048
  4. FERROUS SULFATE [Concomitant]
     Indication: MINERAL SUPPLEMENTATION
  5. PREDNISONE [Concomitant]
     Route: 048
  6. NEXIUM [Concomitant]
     Route: 048
  7. LIALDA [Concomitant]
  8. ALBUTEROL [Concomitant]
     Route: 055

REACTIONS (7)
  - Injection site pain [Recovered/Resolved]
  - Somnolence [Recovering/Resolving]
  - Chest pain [Unknown]
  - Oropharyngeal pain [Unknown]
  - Injection site erythema [Unknown]
  - Injection site swelling [Recovered/Resolved]
  - Injection site pain [Unknown]
